FAERS Safety Report 15902019 (Version 1)
Quarter: 2019Q1

REPORT INFORMATION
  Report Type: Spontaneous
  Country: JP (occurrence: JP)
  Receive Date: 20190201
  Receipt Date: 20190201
  Transmission Date: 20190417
  Serious: Yes (Other)
  Sender: FDA-Public Use
  Company Number: JP-ELI_LILLY_AND_COMPANY-JP201811012935

PATIENT
  Age: 70 Year
  Sex: Male

DRUGS (3)
  1. ENTECAVIR. [Concomitant]
     Active Substance: ENTECAVIR
     Indication: PROPHYLAXIS
     Dosage: UNK
  2. PACLITAXEL. [Concomitant]
     Active Substance: PACLITAXEL
     Indication: OROPHARYNGEAL CANCER
     Dosage: UNK, UNKNOWN
     Route: 065
  3. ERBITUX [Suspect]
     Active Substance: CETUXIMAB
     Indication: OROPHARYNGEAL CANCER
     Dosage: UNK
     Route: 041

REACTIONS (4)
  - Off label use [Unknown]
  - Neutrophil count decreased [Unknown]
  - Hypomagnesaemia [Unknown]
  - Decreased appetite [Unknown]
